FAERS Safety Report 6534430-9 (Version None)
Quarter: 2009Q4

REPORT INFORMATION
  Report Type: 
  Country: None (occurrence: None)
  Receive Date: 20091228
  Receipt Date: 20090611
  Transmission Date: 20100525
  Serious: Yes (Other)
  Sender: FDA-Public Use
  Company Number: 20090238

PATIENT
  Sex: Female

DRUGS (1)
  1. VENOFER [Suspect]
     Dosage: 400MG IN 250 ML NS

REACTIONS (2)
  - ANAPHYLACTOID REACTION [None]
  - JOINT STIFFNESS [None]
